FAERS Safety Report 21684408 (Version 2)
Quarter: 2022Q4

REPORT INFORMATION
  Report Type: Spontaneous
  Country: JP (occurrence: JP)
  Receive Date: 20221205
  Receipt Date: 20221229
  Transmission Date: 20230112
  Serious: Yes (Death, Other)
  Sender: FDA-Public Use
  Company Number: JP-MSD-2211JPN003863J

PATIENT
  Age: 65 Year
  Sex: Female
  Weight: 30 kg

DRUGS (1)
  1. TEMOZOLOMIDE [Suspect]
     Active Substance: TEMOZOLOMIDE
     Indication: Glioma
     Dosage: 75 MILLIGRAM/SQ. METER

REACTIONS (2)
  - Pneumonia aspiration [Fatal]
  - Dysphagia [Unknown]
